FAERS Safety Report 10705370 (Version 10)
Quarter: 2015Q2

REPORT INFORMATION
  Report Type: Report from Study
  Country: JP (occurrence: JP)
  Receive Date: 20150112
  Receipt Date: 20150623
  Transmission Date: 20150821
  Serious: Yes (Hospitalization, Other)
  Sender: FDA-Public Use
  Company Number: JP-CELGENE-JPN-2015010487

PATIENT
  Age: 67 Year
  Sex: Male
  Weight: 57.1 kg

DRUGS (53)
  1. ECABET SODIUM HYDRATE [Concomitant]
     Indication: GASTRIC ULCER
     Route: 048
     Dates: start: 20141219, end: 20150225
  2. SOLACET F [Concomitant]
     Indication: NUTRITIONAL SUPPLEMENTATION
     Dosage: 64.71 GRAM
     Route: 041
     Dates: start: 20150309, end: 20150309
  3. SOLACET F [Concomitant]
     Route: 041
     Dates: start: 20150310, end: 20150310
  4. HUMAN INSULIN [Concomitant]
     Active Substance: INSULIN HUMAN
     Indication: PRODUCT USED FOR UNKNOWN INDICATION
     Dosage: 2-8
     Route: 058
     Dates: start: 20150310
  5. MAGNESIUM CITRATE. [Concomitant]
     Active Substance: MAGNESIUM CITRATE
     Indication: ENEMA ADMINISTRATION
     Route: 048
     Dates: start: 20150305, end: 20150305
  6. SODIUM PICOSULFATE HYDRATE [Concomitant]
     Indication: SURGERY
  7. SOLACET D [Concomitant]
     Route: 041
     Dates: start: 20150321
  8. CC-10004 [Suspect]
     Active Substance: APREMILAST
     Indication: PSORIASIS
     Route: 048
     Dates: start: 20140319, end: 20141222
  9. WHITE PETROLATUM [Concomitant]
     Active Substance: PETROLATUM
     Indication: PSORIASIS
     Dosage: 1 ADEQUATE
     Route: 061
     Dates: start: 20140210, end: 20150304
  10. SODIUM CHLORIDE/POTASSIUM CHLORIDE/SODIUM BICARBONATE/ANHYDROUS SODIUM [Concomitant]
     Indication: ENDOSCOPY LARGE BOWEL
     Dosage: 2.93/1.485/3.37/11.37G
     Route: 048
     Dates: start: 20141219, end: 20141219
  11. GLUACETO 35 [Concomitant]
     Indication: NUTRITIONAL SUPPLEMENTATION
     Dosage: 50 MILLIGRAM
     Route: 041
     Dates: start: 20150307, end: 20150308
  12. LIDOCAINE HYDROCHLORIDE MONOHYDRATE [Concomitant]
     Indication: PRODUCT USED FOR UNKNOWN INDICATION
     Dosage: 20 MILLIGRAM
     Route: 065
     Dates: start: 20150309, end: 20150312
  13. AMIDOTRIZOIC ACID [Concomitant]
     Indication: ENEMA ADMINISTRATION
     Route: 065
     Dates: start: 20150305, end: 20150305
  14. PROPOFOL. [Concomitant]
     Active Substance: PROPOFOL
     Indication: EPIDURAL ANAESTHESIA
     Dosage: 1000 MILLILITER
     Route: 041
     Dates: start: 20150309, end: 20150309
  15. PHENYLEPHRINE HYDROCHLORIDE. [Concomitant]
     Active Substance: PHENYLEPHRINE HYDROCHLORIDE
     Indication: PRODUCT USED FOR UNKNOWN INDICATION
     Dosage: 2 GRAM
     Route: 041
     Dates: start: 20150309, end: 20150309
  16. CARBAZOCHROME SODIUM SULFONATE HYDRATE [Concomitant]
     Indication: PRODUCT USED FOR UNKNOWN INDICATION
     Route: 041
     Dates: start: 20150312, end: 20150314
  17. MAGNESIUM OXIDE. [Concomitant]
     Active Substance: MAGNESIUM OXIDE
     Indication: CONSTIPATION
     Route: 048
     Dates: start: 20141001, end: 20141225
  18. MAGNESIUM OXIDE. [Concomitant]
     Active Substance: MAGNESIUM OXIDE
     Route: 048
     Dates: start: 20141111, end: 20141225
  19. SODIUM ALGINATE [Concomitant]
     Active Substance: SODIUM ALGINATE
     Indication: GASTRIC ULCER
     Dosage: 10 MILLIGRAM
     Route: 048
     Dates: start: 20141007, end: 20141218
  20. SCOPOLAMINE BUTYLBROMIDE [Concomitant]
     Active Substance: SCOPOLAMINE
     Indication: ENEMA ADMINISTRATION
     Route: 041
     Dates: start: 20150305, end: 20150305
  21. HEPARINOID [Concomitant]
     Active Substance: CHONDROITIN SULFATE (BOVINE)
     Indication: PSORIASIS
     Route: 061
     Dates: start: 20150109, end: 20150114
  22. SOLDEM 3A [Concomitant]
     Active Substance: CARBOHYDRATES\POTASSIUM CHLORIDE\SODIUM CHLORIDE\SODIUM LACTATE
     Indication: NUTRITIONAL SUPPLEMENTATION
     Dosage: .6 PERCENT
     Route: 041
     Dates: start: 20150309, end: 20150309
  23. IOPAMIDOL [Concomitant]
     Active Substance: IOPAMIDOL
     Route: 041
     Dates: start: 20150318, end: 20150318
  24. IOPAMIDOL [Concomitant]
     Active Substance: IOPAMIDOL
     Dosage: 1 GRAM
     Route: 041
     Dates: start: 20150327, end: 20150327
  25. SODIUM PICOSULFATE HYDRATE [Concomitant]
     Indication: ENEMA ADMINISTRATION
     Route: 048
     Dates: start: 20150308, end: 20150308
  26. ASCORBIC ACID. [Concomitant]
     Active Substance: ASCORBIC ACID
     Dosage: 1.6 MILLIGRAM
     Route: 041
     Dates: start: 20150310, end: 20150320
  27. FENTANYL CITRATE. [Concomitant]
     Active Substance: FENTANYL CITRATE
     Route: 065
     Dates: start: 20150310, end: 20150312
  28. SOLACET D [Concomitant]
     Indication: NUTRITIONAL SUPPLEMENTATION
     Route: 041
     Dates: start: 20150310, end: 20150320
  29. TRANEXAMIC ACID. [Concomitant]
     Active Substance: TRANEXAMIC ACID
     Indication: PRODUCT USED FOR UNKNOWN INDICATION
     Dosage: 100 MILLIGRAM
     Route: 041
     Dates: start: 20150312, end: 20150314
  30. RABEPRAZOLE SODIUM. [Concomitant]
     Active Substance: RABEPRAZOLE SODIUM
     Indication: GASTRIC ULCER
     Route: 048
     Dates: start: 20141006, end: 20150225
  31. PREDNISOLONE. [Concomitant]
     Active Substance: PREDNISOLONE
     Indication: PSORIASIS
     Dosage: 200 MILLIGRAM
     Route: 061
     Dates: start: 20141126, end: 20150114
  32. SENNOSIDE A B CALCIUM [Concomitant]
     Indication: ENDOSCOPY LARGE BOWEL
     Dosage: 1 PERCENT
     Route: 048
     Dates: start: 20141218, end: 20141218
  33. SCOPOLAMINE BUTYLBROMIDE [Concomitant]
     Active Substance: SCOPOLAMINE
     Indication: ENDOSCOPY LARGE BOWEL
     Route: 041
     Dates: start: 20141219, end: 20141219
  34. REMIFENTANIL HYDROCHLORIDE [Concomitant]
     Active Substance: REMIFENTANIL HYDROCHLORIDE
     Indication: EPIDURAL ANAESTHESIA
     Route: 041
     Dates: start: 20150309, end: 20150309
  35. ROCURONIUM BROMIDE. [Concomitant]
     Active Substance: ROCURONIUM BROMIDE
     Indication: PRODUCT USED FOR UNKNOWN INDICATION
     Route: 041
     Dates: start: 20150309, end: 20150309
  36. ROPIVACAINE HYDROCHLORIDE. [Concomitant]
     Active Substance: ROPIVACAINE HYDROCHLORIDE
     Indication: PRODUCT USED FOR UNKNOWN INDICATION
     Dosage: 80 MILLIGRAM
     Route: 065
     Dates: start: 20150309, end: 20150309
  37. METOCLOPRAMIDE. [Concomitant]
     Active Substance: METOCLOPRAMIDE
     Indication: NAUSEA
     Dosage: 36 MILLIGRAM
     Route: 048
     Dates: start: 20141219, end: 20141219
  38. FENTANYL CITRATE. [Concomitant]
     Active Substance: FENTANYL CITRATE
     Indication: EPIDURAL ANAESTHESIA
     Dosage: 34 GRAM
     Route: 065
     Dates: start: 20150309, end: 20150309
  39. DROPERIDOL. [Concomitant]
     Active Substance: DROPERIDOL
     Indication: EPIDURAL ANAESTHESIA
     Dosage: 2 MILLIGRAM
     Route: 065
     Dates: start: 20150309, end: 20150312
  40. SODIUM FERROUS CITRATE [Concomitant]
     Indication: ANAEMIA
     Dosage: 60 MILLILITER
     Route: 048
     Dates: start: 20141016, end: 20141201
  41. LIDOCAINE. [Concomitant]
     Active Substance: LIDOCAINE
     Indication: ENDOSCOPY LARGE BOWEL
     Route: 061
     Dates: start: 20141219, end: 20141219
  42. IOHEXOL [Concomitant]
     Active Substance: IOHEXOL
     Indication: COMPUTERISED TOMOGRAM
     Route: 041
     Dates: start: 20150109, end: 20150109
  43. SOLDEM 3A [Concomitant]
     Active Substance: CARBOHYDRATES\POTASSIUM CHLORIDE\SODIUM CHLORIDE\SODIUM LACTATE
     Route: 041
     Dates: start: 20150331
  44. CEFMETAZOLE SODIUM [Concomitant]
     Active Substance: CEFMETAZOLE SODIUM
     Indication: INFECTION PROPHYLAXIS
     Dosage: 400 MILLILITER
     Route: 041
     Dates: start: 20150309, end: 20150320
  45. DESFLURANE. [Concomitant]
     Active Substance: DESFLURANE
     Indication: EPIDURAL ANAESTHESIA
     Dosage: 150 MILLIGRAM
     Route: 055
     Dates: start: 20150309, end: 20150309
  46. INDAST [Concomitant]
     Indication: INFECTION PROPHYLAXIS
     Dosage: 2 GRAM
     Route: 041
     Dates: start: 20150327
  47. METOCLOPRAMIDE. [Concomitant]
     Active Substance: METOCLOPRAMIDE
     Route: 048
     Dates: start: 20150611
  48. FLURBIPROFEN AXETIL [Concomitant]
     Active Substance: FLURBIPROFEN AXETIL
     Indication: PROCEDURAL PAIN
     Route: 041
     Dates: start: 20150310, end: 20150310
  49. IOPAMIDOL [Concomitant]
     Active Substance: IOPAMIDOL
     Indication: PRODUCT USED FOR UNKNOWN INDICATION
     Route: 041
     Dates: start: 20150304, end: 20150304
  50. ASCORBIC ACID. [Concomitant]
     Active Substance: ASCORBIC ACID
     Indication: NUTRITIONAL SUPPLEMENTATION
     Route: 041
     Dates: start: 20150307, end: 20150308
  51. VITAMEDIN [Concomitant]
     Active Substance: CYANOCOBALAMIN\PYRIDOXINE HYDROCHLORIDE\THIAMINE
     Indication: NUTRITIONAL SUPPLEMENTATION
     Dosage: 107.13/100/1 MG
     Route: 041
     Dates: start: 20150307, end: 20150308
  52. EPHEDRINE HYDROCHLORIDE [Concomitant]
     Active Substance: EPHEDRINE HYDROCHLORIDE
     Indication: PRODUCT USED FOR UNKNOWN INDICATION
     Route: 041
     Dates: start: 20150309, end: 20150309
  53. ROPIVACAINE HYDROCHLORIDE. [Concomitant]
     Active Substance: ROPIVACAINE HYDROCHLORIDE
     Route: 065
     Dates: start: 20150310, end: 20150312

REACTIONS (3)
  - Adenocarcinoma of colon [Not Recovered/Not Resolved]
  - Colon cancer metastatic [Not Recovered/Not Resolved]
  - Pneumothorax [Recovered/Resolved]

NARRATIVE: CASE EVENT DATE: 20141219
